FAERS Safety Report 7676670-1 (Version None)
Quarter: 2011Q3

REPORT INFORMATION
  Report Type: 
  Country: None (occurrence: None)
  Receive Date: 20110811
  Receipt Date: 20110808
  Transmission Date: 20111222
  Serious: Yes (Other)
  Sender: FDA-Public Use
  Company Number: US-PFIZER INC-2011182027

PATIENT
  Sex: Male
  Weight: 81.633 kg

DRUGS (10)
  1. EFFEXOR XR [Suspect]
     Dosage: UNK
  2. MULTI-VITAMINS [Concomitant]
     Dosage: UNK, 1X/DAY
  3. EFFEXOR XR [Suspect]
     Indication: DEPRESSION
     Dosage: 37.5 MG, 1X/DAY
     Route: 048
  4. EFFEXOR XR [Suspect]
     Dosage: 275 MG, 1X/DAY
  5. CRESTOR [Concomitant]
     Dosage: 10 MG, 1X/DAY
  6. ZOLOFT [Suspect]
     Indication: DEPRESSION
     Dosage: UNK
  7. SEROQUEL [Concomitant]
     Dosage: 200 MG, 1X/DAY
  8. PROTONIX [Concomitant]
     Dosage: 40 MG, 1X/DAY
  9. GEMFIBROZIL [Concomitant]
     Dosage: 60 MG, 2X/DAY
  10. ALPRAZOLAM [Concomitant]
     Dosage: 2 MG, 3X/DAY

REACTIONS (4)
  - DIABETES MELLITUS [None]
  - DEPRESSED MOOD [None]
  - DIZZINESS [None]
  - FALL [None]
